FAERS Safety Report 8355071-7 (Version None)
Quarter: 2012Q2

REPORT INFORMATION
  Report Type: 
  Country: None (occurrence: None)
  Receive Date: 20120511
  Receipt Date: 20120505
  Transmission Date: 20120825
  Serious: Yes (Other)
  Sender: FDA-Public Use
  Company Number: US-TEVA-336980USA

PATIENT
  Sex: Female

DRUGS (1)
  1. TRISENOX [Suspect]
     Dosage: UNKNOWN

REACTIONS (1)
  - MULTI-ORGAN FAILURE [None]
